FAERS Safety Report 7652883-X (Version None)
Quarter: 2011Q3

REPORT INFORMATION
  Report Type: 
  Country: None (occurrence: None)
  Receive Date: 20110802
  Receipt Date: 20110802
  Transmission Date: 20111222
  Serious: Yes (Hospitalization)
  Sender: FDA-Public Use
  Company Number: None

PATIENT
  Age: 84 Year
  Sex: Male
  Weight: 92.9874 kg

DRUGS (1)
  1. KEFLEX [Suspect]

REACTIONS (5)
  - MALAISE [None]
  - CLOSTRIDIUM DIFFICILE COLITIS [None]
  - DEPRESSION [None]
  - WEIGHT DECREASED [None]
  - ASTHENIA [None]
